FAERS Safety Report 5010368-3 (Version None)
Quarter: 2006Q2

REPORT INFORMATION
  Report Type: 
  Country: None (occurrence: None)
  Receive Date: 20060523
  Receipt Date: 20060517
  Transmission Date: 20061013
  Serious: Yes (Other)
  Sender: FDA-Public Use
  Company Number: 2006065065

PATIENT
  Sex: Female

DRUGS (1)
  1. LISTERINE ANTISEPTIC MOUTHWASH (MENTHOL, METHYL SALICYLATE, EUCALYPTOL [Suspect]
     Indication: SUICIDE ATTEMPT
     Dosage: 1/4 OF A BOTTLE ONCE, ORAL
     Route: 048
     Dates: start: 20051201, end: 20051201

REACTIONS (3)
  - INCORRECT DOSE ADMINISTERED [None]
  - INTENTIONAL DRUG MISUSE [None]
  - SUICIDE ATTEMPT [None]
